FAERS Safety Report 6908503-2 (Version None)
Quarter: 2010Q3

REPORT INFORMATION
  Report Type: 
  Country: None (occurrence: None)
  Receive Date: 20100805
  Receipt Date: 20100724
  Transmission Date: 20110219
  Serious: Yes (Hospitalization)
  Sender: FDA-Public Use
  Company Number: US-PFIZER INC-2010092773

PATIENT
  Age: 56 Year
  Sex: Female
  Weight: 89.4 kg

DRUGS (1)
  1. SUNITINIB MALATE [Suspect]
     Indication: ENDOMETRIAL CANCER METASTATIC
     Dosage: 50 MG, QD FOR 4 WEEKS
     Route: 048
     Dates: start: 20091203, end: 20100622

REACTIONS (1)
  - CHOLECYSTITIS [None]
